FAERS Safety Report 6413566-7 (Version None)
Quarter: 2009Q4

REPORT INFORMATION
  Report Type: 
  Country: None (occurrence: None)
  Receive Date: 20091026
  Receipt Date: 20091016
  Transmission Date: 20100525
  Serious: Yes (Death, Hospitalization, Other)
  Sender: FDA-Public Use
  Company Number: CA-ABBOTT-09P-028-0499284-00

PATIENT
  Sex: Male
  Weight: 104.42 kg

DRUGS (5)
  1. LUPRON DEPOT [Suspect]
     Indication: PROSTATE CANCER
     Dates: start: 20020101, end: 20090520
  2. BICALUTAMIDE [Concomitant]
     Indication: DRUG USE FOR UNKNOWN INDICATION
  3. ACCUPRIL [Concomitant]
     Indication: DRUG USE FOR UNKNOWN INDICATION
  4. FUROSEMIDE [Concomitant]
     Indication: DRUG USE FOR UNKNOWN INDICATION
  5. ASPIRIN [Concomitant]
     Indication: DRUG USE FOR UNKNOWN INDICATION

REACTIONS (2)
  - BLADDER CANCER [None]
  - DISEASE PROGRESSION [None]
